FAERS Safety Report 6642497-2 (Version None)
Quarter: 2010Q1

REPORT INFORMATION
  Report Type: 
  Country: None (occurrence: None)
  Receive Date: 20100319
  Receipt Date: 20100310
  Transmission Date: 20100710
  Serious: Yes (Other)
  Sender: FDA-Public Use
  Company Number: AU-JNJFOC-20100304126

PATIENT
  Sex: Male

DRUGS (5)
  1. REMICADE [Suspect]
     Indication: COLITIS ULCERATIVE
     Dosage: 1 DOSE
     Route: 042
     Dates: start: 20070401
  2. HYDROCORTISONE [Concomitant]
     Route: 042
  3. AZATHIOPRINE [Concomitant]
  4. SALAZOPYRIN [Concomitant]
  5. SALOFALK [Concomitant]

REACTIONS (2)
  - CHRONIC MYELOID LEUKAEMIA [None]
  - LYMPHOMA [None]
